FAERS Safety Report 11730656 (Version 5)
Quarter: 2018Q1

REPORT INFORMATION
  Report Type: Spontaneous
  Country: PT (occurrence: PT)
  Receive Date: 20151112
  Receipt Date: 20180117
  Transmission Date: 20180508
  Serious: Yes (Hospitalization, Other)
  Sender: FDA-Public Use
  Company Number: PT-GILEAD-2015-0177686

PATIENT
  Age: 46 Year
  Sex: Male

DRUGS (9)
  1. TRUVADA [Suspect]
     Active Substance: EMTRICITABINE\TENOFOVIR DISOPROXIL FUMARATE
     Indication: HIV INFECTION
     Dosage: UNK
     Route: 065
     Dates: start: 201407
  2. RIBAVIRIN. [Concomitant]
     Active Substance: RIBAVIRIN
  3. OXAZEPAM. [Concomitant]
     Active Substance: OXAZEPAM
  4. ATAZANAVIR W/RITONAVIR [Suspect]
     Active Substance: ATAZANAVIR\RITONAVIR
     Indication: HIV INFECTION
     Dosage: UNK
     Route: 065
     Dates: start: 201407
  5. MIRTAZAPINA [Concomitant]
     Active Substance: MIRTAZAPINE
  6. METADONA                           /00068901/ [Concomitant]
  7. HARVONI [Suspect]
     Active Substance: LEDIPASVIR\SOFOSBUVIR
     Indication: HEPATITIS C
     Dosage: UNK
     Route: 065
     Dates: start: 20150305, end: 20150618
  8. LORAZEPAN [Concomitant]
     Active Substance: LORAZEPAM
  9. ALPRAZOLAN [Concomitant]
     Active Substance: ALPRAZOLAM

REACTIONS (8)
  - Acute kidney injury [Unknown]
  - Jaundice [Unknown]
  - Hyperbilirubinaemia [Unknown]
  - Drug intolerance [Unknown]
  - Jaundice [Unknown]
  - Haemoglobin decreased [Unknown]
  - Vomiting [Unknown]
  - Blood creatinine increased [Unknown]

NARRATIVE: CASE EVENT DATE: 2015
